FAERS Safety Report 9324261 (Version 1)
Quarter: 2013Q2

REPORT INFORMATION
  Report Type: Spontaneous
  Country: AU (occurrence: AU)
  Receive Date: 20130603
  Receipt Date: 20130603
  Transmission Date: 20140414
  Serious: Yes (Other)
  Sender: FDA-Public Use
  Company Number: AU-B.I. PHARMACEUTICALS,INC./RIDGEFIELD-2013-AU-00644AU

PATIENT
  Sex: Female

DRUGS (2)
  1. PRADAXA [Suspect]
     Dosage: 260 MG
  2. PRADAXA [Suspect]
     Dates: start: 2009

REACTIONS (3)
  - Transient ischaemic attack [Unknown]
  - Thrombosis [Unknown]
  - Off label use [Unknown]
